FAERS Safety Report 9959181 (Version 1)
Quarter: 2014Q1

REPORT INFORMATION
  Report Type: Spontaneous
  Country: US (occurrence: US)
  Receive Date: 20140305
  Receipt Date: 20140305
  Transmission Date: 20141002
  Serious: No
  Sender: FDA-Public Use
  Company Number: US-ABBVIE-13P-163-1104011-00

PATIENT
  Age: 22 Year
  Sex: Male
  Weight: 81.72 kg

DRUGS (6)
  1. HUMIRA [Suspect]
     Indication: CROHN^S DISEASE
     Route: 058
     Dates: start: 201212, end: 201212
  2. HUMIRA [Suspect]
     Route: 058
     Dates: start: 201212, end: 201212
  3. HUMIRA [Suspect]
     Route: 058
     Dates: start: 201301
  4. HUMALOG [Concomitant]
     Indication: TYPE 1 DIABETES MELLITUS
  5. MULTIVITAMIN [Concomitant]
     Indication: VITAMIN SUPPLEMENTATION
  6. PROBIOTICS NOS [Concomitant]
     Indication: CROHN^S DISEASE

REACTIONS (3)
  - Incorrect dose administered [Recovered/Resolved]
  - Injection site pain [Not Recovered/Not Resolved]
  - Injection site pain [Not Recovered/Not Resolved]
